FAERS Safety Report 14204249 (Version 2)
Quarter: 2017Q4

REPORT INFORMATION
  Report Type: Spontaneous
  Country: CZ (occurrence: CZ)
  Receive Date: 20171120
  Receipt Date: 20171122
  Transmission Date: 20180321
  Serious: Yes (Other)
  Sender: FDA-Public Use
  Company Number: CZ-009507513-1711CZE006416

PATIENT
  Age: 67 Year
  Sex: Male

DRUGS (1)
  1. KEYTRUDA [Suspect]
     Active Substance: PEMBROLIZUMAB
     Indication: MALIGNANT MELANOMA
     Dosage: 2 MG/KG, Q3W
     Route: 042
     Dates: start: 201506

REACTIONS (7)
  - Dyspnoea [Recovered/Resolved]
  - Rash [Recovered/Resolved]
  - Acute coronary syndrome [Recovered/Resolved]
  - Cancer pain [Recovered/Resolved]
  - Pruritus [Recovered/Resolved]
  - Chest pain [Recovered/Resolved]
  - Fatigue [Recovered/Resolved]

NARRATIVE: CASE EVENT DATE: 2015
